FAERS Safety Report 4775602-3 (Version None)
Quarter: 2005Q3

REPORT INFORMATION
  Report Type: 
  Country: None (occurrence: None)
  Receive Date: 20050919
  Receipt Date: 20050919
  Transmission Date: 20060218
  Serious: No
  Sender: FDA-Public Use
  Company Number: None

PATIENT
  Age: 50 Year
  Sex: Female
  Weight: 81.6475 kg

DRUGS (2)
  1. ABILIFY [Suspect]
     Indication: DEPRESSION
     Dosage: 15 MG ONCE A DAY PO
     Route: 048
     Dates: start: 20050101, end: 20050810
  2. ABILIFY [Suspect]
     Indication: POST-TRAUMATIC STRESS DISORDER
     Dosage: 15 MG ONCE A DAY PO
     Route: 048
     Dates: start: 20050101, end: 20050810

REACTIONS (14)
  - ABNORMAL BEHAVIOUR [None]
  - DETOXIFICATION [None]
  - DRUG WITHDRAWAL SYNDROME [None]
  - ECONOMIC PROBLEM [None]
  - FEELING ABNORMAL [None]
  - GAMBLING [None]
  - HALLUCINATION, VISUAL [None]
  - HYPERSOMNIA [None]
  - IMPAIRED SELF-CARE [None]
  - INSOMNIA [None]
  - LEGAL PROBLEM [None]
  - MEMORY IMPAIRMENT [None]
  - OBSESSIVE-COMPULSIVE DISORDER [None]
  - THINKING ABNORMAL [None]
